FAERS Safety Report 23762289 (Version 1)
Quarter: 2024Q2

REPORT INFORMATION
  Report Type: Spontaneous
  Country: US (occurrence: US)
  Receive Date: 20240419
  Receipt Date: 20240419
  Transmission Date: 20240716
  Serious: Yes (Other)
  Sender: FDA-Public Use
  Company Number: US-Merck Healthcare KGaA-2024019652

PATIENT
  Age: 63 Year
  Sex: Male

DRUGS (1)
  1. SEROSTIM [Suspect]
     Active Substance: SOMATROPIN
     Indication: Product used for unknown indication
     Dosage: INJECTABLE UNDER THE SKIN

REACTIONS (2)
  - Cataract operation [Unknown]
  - Ocular discomfort [Unknown]
